FAERS Safety Report 6769112-1 (Version None)
Quarter: 2010Q2

REPORT INFORMATION
  Report Type: 
  Country: None (occurrence: None)
  Receive Date: 20100603
  Receipt Date: 20100525
  Transmission Date: 20101027
  Serious: Yes (Other)
  Sender: FDA-Public Use
  Company Number: 2010SP029000

PATIENT
  Age: 56 Year
  Sex: Male

DRUGS (3)
  1. INTEGRILIN [Suspect]
     Indication: ACUTE MYOCARDIAL INFARCTION
     Dosage: 180 MCG/KG; ; IV
     Route: 042
  2. ASPIRIN [Concomitant]
  3. HEPARIN [Concomitant]

REACTIONS (1)
  - PHLEBITIS [None]
